FAERS Safety Report 19066440 (Version 1)
Quarter: 2021Q1

REPORT INFORMATION
  Report Type: Report from Study
  Country: US (occurrence: US)
  Receive Date: 20210328
  Receipt Date: 20210328
  Transmission Date: 20210420
  Serious: Yes (Other)
  Sender: FDA-Public Use
  Company Number: US-TEVA-2021-US-1893719

PATIENT
  Age: 11 Month
  Sex: Female

DRUGS (1)
  1. CISPLATIN. [Suspect]
     Active Substance: CISPLATIN
     Indication: HEPATOBLASTOMA
     Dosage: EVERY 2 WEEKS
     Route: 065

REACTIONS (2)
  - Ototoxicity [Unknown]
  - Tumour lysis syndrome [Unknown]
